FAERS Safety Report 12746521 (Version 1)
Quarter: 2016Q3

REPORT INFORMATION
  Report Type: Spontaneous
  Country: US (occurrence: US)
  Receive Date: 20160915
  Receipt Date: 20160915
  Transmission Date: 20161109
  Serious: No
  Sender: FDA-Public Use
  Company Number: US-ALEXION PHARMACEUTICALS INC.-A201606740

PATIENT
  Sex: Male

DRUGS (2)
  1. KANUMA [Suspect]
     Active Substance: SEBELIPASE ALFA
     Indication: PRODUCT USED FOR UNKNOWN INDICATION
     Dosage: UNK
     Route: 042
  2. KANUMA [Suspect]
     Active Substance: SEBELIPASE ALFA
     Dosage: 4 MG/KG, QW
     Route: 042

REACTIONS (2)
  - Incorrect dose administered [Unknown]
  - Drug effect incomplete [Unknown]
